FAERS Safety Report 9467917 (Version 2)
Quarter: 2013Q3

REPORT INFORMATION
  Report Type: Spontaneous
  Country: JP (occurrence: JP)
  Receive Date: 20130821
  Receipt Date: 20130918
  Transmission Date: 20140515
  Serious: Yes (Other)
  Sender: FDA-Public Use
  Company Number: JP-PFIZER INC-2013241502

PATIENT
  Age: 23 Year
  Sex: Male
  Weight: 110 kg

DRUGS (11)
  1. LYRICA [Suspect]
     Indication: POST HERPETIC NEURALGIA
     Dosage: 25 MG, 2X/DAY
     Route: 048
     Dates: start: 20130130, end: 20130207
  2. LYRICA [Suspect]
     Dosage: 50 MG, 2X/DAY
     Route: 048
     Dates: start: 20130208, end: 20130411
  3. LYRICA [Suspect]
     Dosage: 75 MG, 1X/DAY (MORNING: 25 MG, EVENING: 50 MG)
     Route: 048
     Dates: start: 20130412, end: 20130606
  4. LYRICA [Suspect]
     Dosage: 25 MG, 2X/DAY
     Route: 048
     Dates: start: 20130607, end: 20130704
  5. TRYPTANOL [Suspect]
     Indication: POST HERPETIC NEURALGIA
     Dosage: 10 MG, 1X/DAY
     Route: 048
     Dates: start: 20130109, end: 20130114
  6. TRYPTANOL [Suspect]
     Dosage: 20 MG, 1X/DAY
     Route: 048
     Dates: start: 20130115, end: 20130122
  7. TRYPTANOL [Suspect]
     Dosage: 25 MG, 1X/DAY
     Route: 048
     Dates: start: 20130123, end: 20130307
  8. TRYPTANOL [Suspect]
     Dosage: 20 MG, 1X/DAY
     Route: 048
     Dates: start: 20130308, end: 20130321
  9. TRYPTANOL [Suspect]
     Dosage: 10 MG, 1X/DAY
     Route: 048
     Dates: start: 20130322, end: 20130328
  10. GABAPEN [Concomitant]
     Indication: POST HERPETIC NEURALGIA
     Dosage: 200 MG, 1X/DAY
     Route: 048
     Dates: start: 20130712, end: 20130718
  11. GABAPEN [Concomitant]
     Dosage: 200 MG, 2X/DAY
     Route: 048
     Dates: start: 20130719

REACTIONS (1)
  - Weight increased [Recovering/Resolving]
